FAERS Safety Report 18239839 (Version 1)
Quarter: 2020Q3

REPORT INFORMATION
  Report Type: Spontaneous
  Country: FR (occurrence: FR)
  Receive Date: 20200908
  Receipt Date: 20200908
  Transmission Date: 20201103
  Serious: Yes (Hospitalization, Other)
  Sender: FDA-Public Use
  Company Number: FR-CADILA HEALTHCARE LIMITED-FR-ZYDUS-032486

PATIENT

DRUGS (30)
  1. GAVISCON [Concomitant]
     Active Substance: ALUMINUM HYDROXIDE\MAGNESIUM CARBONATE
     Dosage: UNK, TID (),(INTERVAL :1 DAYS)
     Route: 065
  2. STREPSILS [Concomitant]
     Dosage: UNK ()
  3. AZINC [Concomitant]
     Dosage: UNK, BID (),(INTERVAL :1 DAYS)
     Route: 065
  4. STREPSILS [Concomitant]
     Route: 065
  5. LERCAN [Suspect]
     Active Substance: LERCANIDIPINE
     Indication: HYPERTENSION
     Dosage: 20 MILLIGRAM,20 MG, QD,(INTERVAL :1 DAYS)
     Route: 048
     Dates: end: 20171007
  6. REPAGLINIDE. [Suspect]
     Active Substance: REPAGLINIDE
     Indication: STEROID DIABETES
     Dosage: 2 MILLIGRAM,2 MG, QD,(INTERVAL :1 DAYS)
     Route: 048
     Dates: end: 20171007
  7. ARANESP [Suspect]
     Active Substance: DARBEPOETIN ALFA
     Indication: ANAEMIA
     Dosage: 60 MICROGRAM,60 MUG, Q2WK,(INTERVAL :2 WEEKS)
     Route: 058
     Dates: start: 20170801, end: 20171012
  8. SODIUM BICARBONATE. [Concomitant]
     Active Substance: SODIUM BICARBONATE
     Dosage: 1 GRAM,1 G, BID,(INTERVAL :1 DAYS)
     Route: 065
  9. CORTANCYL [Concomitant]
     Active Substance: PREDNISONE
     Dosage: 20 MILLIGRAM,20 MG, QD,(INTERVAL :1 DAYS)
     Route: 065
  10. XANAX [Concomitant]
     Active Substance: ALPRAZOLAM
     Dosage: .25 MILLIGRAM,0.25 MG, TID,(INTERVAL :1 DAYS)
     Route: 065
  11. ALLOPURINOL. [Suspect]
     Active Substance: ALLOPURINOL
     Indication: GOUT
     Dosage: 100 MILLIGRAM,100 MG, QD,(INTERVAL :1 DAYS)
     Route: 048
     Dates: start: 20170801, end: 20171007
  12. MAXILASE [Concomitant]
     Active Substance: PANCRELIPASE
     Dosage: UNK ()
     Route: 065
  13. RANITIDINE. [Concomitant]
     Active Substance: RANITIDINE
     Dosage: 300 MILLIGRAM,300 MG, BID,(INTERVAL :1 DAYS)
     Route: 065
  14. RANITIDINE. [Concomitant]
     Active Substance: RANITIDINE
     Dosage: 300 MILLIGRAM,(INTERVAL :1 DAYS)
     Route: 065
  15. SODIUM BICARBONATE. [Concomitant]
     Active Substance: SODIUM BICARBONATE
     Dosage: 1 GRAM,1 G, BID,(INTERVAL :1 DAYS)
     Route: 065
  16. CACIT D3 [Concomitant]
     Active Substance: CALCIUM\CHOLECALCIFEROL
     Dosage: 1 DOSAGE FORM,1 DF, QD,(INTERVAL :1 DAYS)
     Route: 065
  17. EUPRESSYL [Concomitant]
     Active Substance: URAPIDIL
     Dosage: 60 MILLIGRAM,60 MG, TID,(INTERVAL :1 DAYS)
     Route: 065
  18. CACIT D3 [Concomitant]
     Active Substance: CALCIUM\CHOLECALCIFEROL
     Dosage: 1 DOSAGE FORM,1 DF, QD,(INTERVAL :1 DAYS)
     Route: 065
  19. AZINC [Concomitant]
     Dosage: UNK, BID,(INTERVAL :1 DAYS)
     Route: 065
  20. FORLAX [Concomitant]
     Active Substance: POLYETHYLENE GLYCOL 4000
     Dosage: UNK, QD (),(INTERVAL :1 DAYS)
     Route: 065
  21. CORTANCYL [Concomitant]
     Active Substance: PREDNISONE
     Dosage: 20 MILLIGRAM,20 MG, QD,(INTERVAL :1 DAYS)
     Route: 065
  22. STREPSILS [Concomitant]
     Dosage: (),(INTERVAL :1 DAYS)
     Route: 065
  23. XANAX [Concomitant]
     Active Substance: ALPRAZOLAM
     Dosage: .25 MILLIGRAM,0.25 MG, TID,(INTERVAL :1 DAYS)
     Route: 065
  24. MAXILASE [Concomitant]
     Active Substance: PANCRELIPASE
     Dosage: UNK
     Route: 065
  25. LIDOCAINE. [Concomitant]
     Active Substance: LIDOCAINE
     Dosage: UNK
  26. IMOVANE [Concomitant]
     Active Substance: ZOPICLONE
     Dosage: 7.5 MILLIGRAM,(INTERVAL :1 DAYS)
     Route: 065
  27. EUPRESSYL [Concomitant]
     Active Substance: URAPIDIL
     Dosage: 60 MILLIGRAM,60 MG, TID,(INTERVAL :1 DAYS)
     Route: 065
  28. FORLAX [Concomitant]
     Active Substance: POLYETHYLENE GLYCOL 4000
     Dosage: 60 MUG, Q2WK? SOLUTION FOR INJECTION,(INTERVAL :1 DAYS)
     Route: 065
  29. GAVISCON [Concomitant]
     Active Substance: ALUMINUM HYDROXIDE\MAGNESIUM CARBONATE
     Dosage: UNK, TID,(INTERVAL :1 DAYS)
     Route: 065
  30. IMOVANE [Concomitant]
     Active Substance: ZOPICLONE
     Dosage: 7.5 MILLIGRAM,7.5 MG, QD,(INTERVAL :1 DAYS)
     Route: 065

REACTIONS (6)
  - Pyrexia [Recovered/Resolved]
  - Hepatocellular injury [Recovering/Resolving]
  - Diarrhoea [Recovered/Resolved]
  - Odynophagia [Recovered/Resolved]
  - Rash [Recovering/Resolving]
  - Rash maculo-papular [Recovering/Resolving]

NARRATIVE: CASE EVENT DATE: 201710
